FAERS Safety Report 4770698-7 (Version None)
Quarter: 2005Q3

REPORT INFORMATION
  Report Type: 
  Country: None (occurrence: None)
  Receive Date: 20050915
  Receipt Date: 20050907
  Transmission Date: 20060218
  Serious: Yes (Death, Hospitalization)
  Sender: FDA-Public Use
  Company Number: US-JNJFOC-20050902555

PATIENT
  Age: 25 Year
  Sex: Female

DRUGS (1)
  1. ACETAMINOPHEN/DIPHENHYDRAMINE [Suspect]
     Dosage: 75 OR MORE
     Route: 048

REACTIONS (16)
  - AGITATION [None]
  - ALANINE AMINOTRANSFERASE INCREASED [None]
  - ASPARTATE AMINOTRANSFERASE INCREASED [None]
  - BLOOD ALKALINE PHOSPHATASE INCREASED [None]
  - BLOOD BILIRUBIN INCREASED [None]
  - COMPLETED SUICIDE [None]
  - CONFUSIONAL STATE [None]
  - DRUG TOXICITY [None]
  - HEPATIC FUNCTION ABNORMAL [None]
  - INTENTIONAL MISUSE [None]
  - INTERNATIONAL NORMALISED RATIO INCREASED [None]
  - OVERDOSE [None]
  - PROTHROMBIN TIME PROLONGED [None]
  - RENAL IMPAIRMENT [None]
  - TACHYCARDIA [None]
  - URINE ABNORMALITY [None]
